FAERS Safety Report 19683751 (Version 1)
Quarter: 2021Q3

REPORT INFORMATION
  Report Type: Spontaneous
  Country: None (occurrence: US)
  Receive Date: 20210810
  Receipt Date: 20210810
  Transmission Date: 20211014
  Serious: No
  Sender: FDA-Public Use
  Company Number: US-JIANGSU HENGRUI MEDICINE CO., LTD.-2114862

PATIENT
  Age: 64 Year
  Weight: 85.5 kg

DRUGS (5)
  1. RITUXIMAB. [Suspect]
     Active Substance: RITUXIMAB
  2. DEXAMETHASONE. [Suspect]
     Active Substance: DEXAMETHASONE
  3. OXALIPLATIN INJECTION USP, 5 MG/ML, PACKAGED IN 50 MG/10 ML AND 100 MG [Suspect]
     Active Substance: OXALIPLATIN
     Indication: DIFFUSE LARGE B-CELL LYMPHOMA
  4. OXALIPLATIN. [Suspect]
     Active Substance: OXALIPLATIN
  5. CYTARABINE. [Suspect]
     Active Substance: CYTARABINE

REACTIONS (1)
  - Neoplasm progression [Unknown]
